FAERS Safety Report 25454544 (Version 3)
Quarter: 2025Q3

REPORT INFORMATION
  Report Type: Report from Study
  Country: US (occurrence: US)
  Receive Date: 20250619
  Receipt Date: 20250701
  Transmission Date: 20251021
  Serious: Yes (Other)
  Sender: JAZZ
  Company Number: US-JAZZ PHARMACEUTICALS-2025-US-015259

PATIENT
  Sex: Female

DRUGS (1)
  1. EPIDIOLEX [Suspect]
     Active Substance: CANNABIDIOL
     Indication: Epilepsy
     Dosage: 5.10 MILLIGRAM/KILOGRAM/DAY BID (1.4 MILLILITER BID)
     Route: 048
     Dates: start: 20250601, end: 20250602

REACTIONS (6)
  - Seizure [Unknown]
  - Panic attack [Unknown]
  - Decreased appetite [Unknown]
  - Diarrhoea [Unknown]
  - Headache [Unknown]
  - Dehydration [Unknown]
